FAERS Safety Report 10149631 (Version 2)
Quarter: 2014Q2

REPORT INFORMATION
  Report Type: Spontaneous
  Country: US (occurrence: US)
  Receive Date: 20140502
  Receipt Date: 20140521
  Transmission Date: 20141212
  Serious: Yes (Other)
  Sender: FDA-Public Use
  Company Number: US-PFIZER INC-2014121132

PATIENT
  Age: 64 Year
  Sex: Male
  Weight: 91.16 kg

DRUGS (7)
  1. LYRICA [Suspect]
     Indication: DIABETIC NEUROPATHY
     Dosage: 100 MG, 1X/DAY
     Route: 048
     Dates: start: 2013
  2. FUROSEMIDE [Concomitant]
  3. DOXAZOSIN [Concomitant]
  4. DILTIAZEM [Concomitant]
  5. QUINAPRIL [Concomitant]
     Dosage: UNK
  6. METOPROLOL [Concomitant]
     Dosage: UNK
  7. ADVAIR [Concomitant]
     Dosage: UNK

REACTIONS (6)
  - Transient ischaemic attack [Unknown]
  - Nerve injury [Unknown]
  - Grip strength decreased [Unknown]
  - Tremor [Unknown]
  - Sensory loss [Recovered/Resolved]
  - Muscular weakness [Recovered/Resolved]
